FAERS Safety Report 6371221-6 (Version None)
Quarter: 2009Q3

REPORT INFORMATION
  Report Type: 
  Country: None (occurrence: None)
  Receive Date: 20090923
  Receipt Date: 20070521
  Transmission Date: 20100115
  Serious: Yes (Other)
  Sender: FDA-Public Use
  Company Number: US-ASTRAZENECA-2007UW04314

PATIENT
  Age: 22086 Day
  Sex: Male

DRUGS (12)
  1. SEROQUEL [Suspect]
     Route: 048
     Dates: start: 20010725
  2. ALPRAZOLAM [Concomitant]
     Route: 048
     Dates: start: 19961204
  3. ZOLOFT [Concomitant]
     Route: 048
     Dates: start: 20010725
  4. NEURONTIN [Concomitant]
     Route: 048
     Dates: start: 20010912
  5. PREVACID [Concomitant]
     Route: 048
     Dates: start: 19960530
  6. DIOVAN [Concomitant]
     Dosage: 160 MG AND 12.5 MG
     Route: 048
     Dates: start: 20010825
  7. ACTOS [Concomitant]
     Route: 048
     Dates: start: 20010712
  8. VICODIN [Concomitant]
     Route: 048
     Dates: start: 19961204
  9. MAPROTILINE [Concomitant]
     Route: 048
     Dates: start: 19970319
  10. LEVAQUIN [Concomitant]
     Route: 048
     Dates: start: 20011002
  11. PROMETHAZINE [Concomitant]
     Route: 048
  12. PLAVIX [Concomitant]
     Route: 048
     Dates: start: 20030805

REACTIONS (4)
  - DIABETES MELLITUS [None]
  - DIABETIC KETOACIDOSIS [None]
  - PANCREATITIS [None]
  - TYPE 1 DIABETES MELLITUS [None]
